FAERS Safety Report 16265260 (Version 1)
Quarter: 2019Q2

REPORT INFORMATION
  Report Type: Other
  Country: IT (occurrence: IT)
  Receive Date: 20190502
  Receipt Date: 20190502
  Transmission Date: 20190711
  Serious: Yes (Disabling, Other)
  Sender: FDA-Public Use
  Company Number: IT-MACLEODS PHARMACEUTICALS US LTD-MAC2019021108

PATIENT

DRUGS (1)
  1. LEVOFLOXACIN TABLET [Suspect]
     Active Substance: LEVOFLOXACIN
     Indication: PRODUCT USED FOR UNKNOWN INDICATION
     Dosage: 500 MILLIGRAM, QD,COATED TABLET
     Route: 048

REACTIONS (5)
  - Guillain-Barre syndrome [Recovering/Resolving]
  - Spinal pain [Recovering/Resolving]
  - Asthenia [Recovering/Resolving]
  - Pain in extremity [Recovering/Resolving]
  - Neuritis [Recovering/Resolving]

NARRATIVE: CASE EVENT DATE: 20180925
